FAERS Safety Report 5082449-X (Version None)
Quarter: 2006Q3

REPORT INFORMATION
  Report Type: 
  Country: None (occurrence: None)
  Receive Date: 20060817
  Receipt Date: 20060111
  Transmission Date: 20061208
  Serious: Yes (Hospitalization)
  Sender: FDA-Public Use
  Company Number: DE-GILEAD-2006-0009098

PATIENT
  Sex: Male
  Weight: 58.6 kg

DRUGS (1)
  1. ADEFOVIR DIPIVOXIL [Suspect]
     Indication: HEPATITIS B
     Route: 048
     Dates: start: 20041125, end: 20060114

REACTIONS (6)
  - ADJUSTMENT DISORDER [None]
  - ANOREXIA [None]
  - DEPRESSION [None]
  - INSOMNIA [None]
  - OBSESSIVE-COMPULSIVE DISORDER [None]
  - WEIGHT DECREASED [None]
